FAERS Safety Report 21819056 (Version 2)
Quarter: 2023Q1

REPORT INFORMATION
  Report Type: Report from Study
  Country: CO (occurrence: CO)
  Receive Date: 20230104
  Receipt Date: 20230214
  Transmission Date: 20230417
  Serious: Yes (Hospitalization, Other)
  Sender: FDA-Public Use
  Company Number: CO-ALLERGAN-2242715US

PATIENT
  Sex: Female
  Weight: 60 kg

DRUGS (1)
  1. BOTULINUM TOXIN TYPE A [Suspect]
     Active Substance: BOTULINUM TOXIN TYPE A
     Indication: Migraine
     Dosage: 200 UNITS, SINGLE
     Route: 030
     Dates: start: 20190215, end: 20190215

REACTIONS (6)
  - Horner^s syndrome [Recovering/Resolving]
  - Blindness transient [Recovering/Resolving]
  - Swelling face [Recovering/Resolving]
  - Eye disorder [Recovering/Resolving]
  - Memory impairment [Unknown]
  - Migraine [Recovering/Resolving]

NARRATIVE: CASE EVENT DATE: 20200101
